FAERS Safety Report 6224184-8 (Version None)
Quarter: 2009Q2

REPORT INFORMATION
  Report Type: 
  Country: None (occurrence: None)
  Receive Date: 20090612
  Receipt Date: 20090303
  Transmission Date: 20091009
  Serious: Yes (Other)
  Sender: FDA-Public Use
  Company Number: JP-JNJCH-2009016031

PATIENT
  Age: 70 Year
  Sex: Female

DRUGS (8)
  1. CETIRIZINE HYDROCHLORIDE [Suspect]
     Indication: DRUG USE FOR UNKNOWN INDICATION
     Dosage: TEXT:UNKNOWN
     Route: 048
  2. INTERFERON BETA [Suspect]
     Indication: HEPATITIS C
     Dosage: TEXT:6 MIU
     Route: 042
     Dates: start: 20080518, end: 20090218
  3. OLMESARTAN MEDOXOMIL [Suspect]
     Indication: HYPERTENSION
     Dosage: TEXT:20 MG
     Route: 048
     Dates: start: 20080812, end: 20090224
  4. AZELNIDIPINE [Suspect]
     Indication: HYPERTENSION
     Dosage: TEXT:16 MG
     Route: 048
     Dates: start: 20080812, end: 20090224
  5. NATEGLINIDE [Suspect]
     Indication: DIABETES MELLITUS
     Dosage: TEXT:UNKNOWN
     Route: 048
  6. LOXOPROFEN [Suspect]
     Indication: DRUG USE FOR UNKNOWN INDICATION
     Dosage: TEXT:UNKNOWN
     Route: 048
  7. PIOGLITAZONE [Suspect]
     Indication: DIABETES MELLITUS
     Dosage: TEXT:UNKNOWN
     Route: 048
  8. RABEPRAZOLE SODIUM [Suspect]
     Indication: DRUG USE FOR UNKNOWN INDICATION
     Dosage: TEXT:UNKNOWN
     Route: 048

REACTIONS (1)
  - RETINAL HAEMORRHAGE [None]
